FAERS Safety Report 8974092 (Version 1)
Quarter: 2012Q4

REPORT INFORMATION
  Report Type: Spontaneous
  Country: US (occurrence: None)
  Receive Date: 20121217
  Receipt Date: 20121217
  Transmission Date: 20130627
  Serious: Yes (Other)
  Sender: FDA-Public Use
  Company Number: None

PATIENT
  Age: 71 Year
  Sex: Female
  Weight: 65.32 kg

DRUGS (1)
  1. SPIRIVA [Suspect]
     Indication: COPD
     Dosage: 18 mcg 1x per day inhal
     Route: 055
     Dates: start: 20121208, end: 20121208

REACTIONS (7)
  - Headache [None]
  - Dizziness [None]
  - Vertigo [None]
  - Nausea [None]
  - Vomiting [None]
  - Hypersensitivity [None]
  - Impaired driving ability [None]
